FAERS Safety Report 4971597-8 (Version None)
Quarter: 2006Q2

REPORT INFORMATION
  Report Type: 
  Country: None (occurrence: None)
  Receive Date: 20060413
  Receipt Date: 20060403
  Transmission Date: 20061013
  Serious: Yes (Other)
  Sender: FDA-Public Use
  Company Number: DE-JNJFOC-20060300439

PATIENT
  Sex: Female
  Weight: 68 kg

DRUGS (3)
  1. ITRACOL [Suspect]
     Route: 048
  2. ITRACOL [Suspect]
     Indication: ONYCHOMYCOSIS
     Route: 048
  3. BISOPROLOL FUMARATE AND HYDROCHLOROTHIAZIDE [Concomitant]

REACTIONS (7)
  - ALANINE AMINOTRANSFERASE INCREASED [None]
  - ASPARTATE AMINOTRANSFERASE INCREASED [None]
  - CARDIAC FAILURE [None]
  - DYSPNOEA EXERTIONAL [None]
  - OEDEMA [None]
  - TRANSAMINASES INCREASED [None]
  - WEIGHT INCREASED [None]
